FAERS Safety Report 4685565-7 (Version None)
Quarter: 2005Q2

REPORT INFORMATION
  Report Type: 
  Country: None (occurrence: None)
  Receive Date: 20050606
  Receipt Date: 20050519
  Transmission Date: 20051028
  Serious: Yes (Life-Threatening, Hospitalization)
  Sender: FDA-Public Use
  Company Number: 2004-DE-04841GD

PATIENT
  Age: 17 Year
  Sex: Male
  Weight: 47 kg

DRUGS (2)
  1. IBUPROFEN [Suspect]
     Indication: POSTOPERATIVE ANALGESIA
     Dosage: 2ND LITERATURE SOURCE: 400 MG
  2. SALBUTAMOL (SALBUTAMOL) [Suspect]
     Indication: ASTHMA
     Dosage: IH
     Route: 025

REACTIONS (5)
  - AGITATION [None]
  - CHEST DISCOMFORT [None]
  - OXYGEN SATURATION DECREASED [None]
  - SKIN DISCOLOURATION [None]
  - STATUS ASTHMATICUS [None]
